FAERS Safety Report 20255024 (Version 1)
Quarter: 2021Q4

REPORT INFORMATION
  Report Type: Spontaneous
  Country: FR (occurrence: FR)
  Receive Date: 20211230
  Receipt Date: 20211230
  Transmission Date: 20220303
  Serious: Yes (Hospitalization)
  Sender: FDA-Public Use
  Company Number: None

PATIENT
  Age: 81 Year
  Sex: Male
  Weight: 94 kg

DRUGS (1)
  1. EPLERENONE [Suspect]
     Active Substance: EPLERENONE
     Indication: Cardiomegaly
     Dosage: 25 MG, 1X/DAY
     Route: 048
     Dates: start: 202002, end: 20201001

REACTIONS (1)
  - Erythema [Recovering/Resolving]

NARRATIVE: CASE EVENT DATE: 20200831
